FAERS Safety Report 17050722 (Version 1)
Quarter: 2019Q4

REPORT INFORMATION
  Report Type: Spontaneous
  Country: FR (occurrence: FR)
  Receive Date: 20191119
  Receipt Date: 20191119
  Transmission Date: 20200122
  Serious: Yes (Other)
  Sender: FDA-Public Use
  Company Number: FR-SUN PHARMACEUTICAL INDUSTRIES LTD-2019RR-228078

PATIENT
  Age: 32 Year
  Sex: Female
  Weight: 80 kg

DRUGS (3)
  1. OLANZAPINE. [Suspect]
     Active Substance: OLANZAPINE
     Indication: DELUSION
     Dosage: 15 MILLIGRAM, DAILY
     Route: 048
     Dates: start: 20190303, end: 20190410
  2. PANTOPRAZOLE [Suspect]
     Active Substance: PANTOPRAZOLE
     Indication: GASTROOESOPHAGEAL REFLUX DISEASE
     Dosage: 20 MILLIGRAM, DAILY
     Route: 048
     Dates: start: 20190303
  3. NOZINAN [Suspect]
     Active Substance: LEVOMEPROMAZINE
     Indication: ANXIETY
     Dosage: 50 MILLIGRAM, DAILY
     Route: 048
     Dates: start: 20190303, end: 20190328

REACTIONS (1)
  - Eosinophil count increased [Unknown]

NARRATIVE: CASE EVENT DATE: 20190424
